FAERS Safety Report 9249419 (Version 2)
Quarter: 2013Q2

REPORT INFORMATION
  Report Type: Spontaneous
  Country: US (occurrence: US)
  Receive Date: 20130423
  Receipt Date: 20130520
  Transmission Date: 20140414
  Serious: No
  Sender: FDA-Public Use
  Company Number: US-PFIZER INC-2013127282

PATIENT
  Sex: Female

DRUGS (3)
  1. LYRICA [Suspect]
     Indication: NEURALGIA
     Dosage: 50 MG, 3X/DAY
     Route: 048
     Dates: start: 2013, end: 2013
  2. LYRICA [Suspect]
     Dosage: UNK, 3X/DAY
  3. LYRICA [Suspect]
     Dosage: UNK, 1X/DAY

REACTIONS (2)
  - Burning sensation [Unknown]
  - Pain [Unknown]
